FAERS Safety Report 7891292-5 (Version None)
Quarter: 2011Q4

REPORT INFORMATION
  Report Type: 
  Country: None (occurrence: None)
  Receive Date: 20111103
  Receipt Date: 20111025
  Transmission Date: 20120403
  Serious: Yes (Other)
  Sender: FDA-Public Use
  Company Number: US-ASTRAZENECA-2011SE58374

PATIENT
  Age: 53 Year
  Sex: Female
  Weight: 82.6 kg

DRUGS (5)
  1. SEROQUEL [Suspect]
     Indication: BIPOLAR DISORDER
     Dosage: 600 MG AT NIGHT, 100 MG IN THE MORNING
     Route: 048
     Dates: start: 20101001
  2. SEROQUEL [Suspect]
     Indication: ALCOHOLISM
     Dosage: 600 MG AT NIGHT, 100 MG IN THE MORNING
     Route: 048
     Dates: start: 20101001
  3. LASIX [Concomitant]
  4. GABAPENTIN [Concomitant]
     Dosage: 600 MG, THREE TIMES A DAY
  5. POTASSIUM [Concomitant]
     Dosage: 10 MG, TWO TIMES A DAY

REACTIONS (10)
  - THIRST [None]
  - DRUG WITHDRAWAL SYNDROME [None]
  - TREMOR [None]
  - POST PROCEDURAL COMPLICATION [None]
  - DRUG DOSE OMISSION [None]
  - FEAR [None]
  - NERVOUSNESS [None]
  - HYPERHIDROSIS [None]
  - OFF LABEL USE [None]
  - FEELING OF BODY TEMPERATURE CHANGE [None]
